FAERS Safety Report 4305337-2 (Version None)
Quarter: 2004Q1

REPORT INFORMATION
  Report Type: 
  Country: None (occurrence: None)
  Receive Date: 20040226
  Receipt Date: 20030620
  Transmission Date: 20041129
  Serious: No
  Sender: FDA-Public Use
  Company Number: US-BRISTOL-MYERS SQUIBB COMPANY-12307732

PATIENT
  Sex: Female

DRUGS (2)
  1. TAXOL [Suspect]
     Dates: start: 20030620, end: 20030620
  2. CARBOPLATIN [Concomitant]

REACTIONS (1)
  - MEDICATION ERROR [None]
